FAERS Safety Report 4274943-6 (Version None)
Quarter: 2004Q1

REPORT INFORMATION
  Report Type: 
  Country: None (occurrence: None)
  Receive Date: 20040120
  Receipt Date: 20040112
  Transmission Date: 20041129
  Serious: Yes (Death)
  Sender: FDA-Public Use
  Company Number: 03-11-1393

PATIENT
  Age: 81 Year
  Sex: Female

DRUGS (1)
  1. CLOZAPINE [Suspect]
     Indication: SCHIZOPHRENIA
     Dosage: 37.5-175 MG QD ORAL
     Route: 048
     Dates: start: 20011101, end: 20031001

REACTIONS (3)
  - ASPHYXIA [None]
  - ASPIRATION [None]
  - DYSPHAGIA [None]
